FAERS Safety Report 8018661-7 (Version None)
Quarter: 2012Q1

REPORT INFORMATION
  Report Type: 
  Country: None (occurrence: None)
  Receive Date: 20120103
  Receipt Date: 20120103
  Transmission Date: 20120608
  Serious: Yes (Other)
  Sender: FDA-Public Use
  Company Number: None

PATIENT
  Age: 35 Year
  Sex: Female
  Weight: 48.987 kg

DRUGS (1)
  1. YAZ [Suspect]
     Indication: MENORRHAGIA
     Dosage: 1 TAB
     Route: 048
     Dates: start: 20100601, end: 20111222

REACTIONS (15)
  - DIZZINESS [None]
  - TREMOR [None]
  - MALAISE [None]
  - NAUSEA [None]
  - THINKING ABNORMAL [None]
  - FEAR OF DEATH [None]
  - ANXIETY [None]
  - ASTHENIA [None]
  - HYPERHIDROSIS [None]
  - FOOD INTOLERANCE [None]
  - DIARRHOEA [None]
  - PARAESTHESIA [None]
  - FATIGUE [None]
  - MUSCLE SPASMS [None]
  - FEELING ABNORMAL [None]
